FAERS Safety Report 20155826 (Version 2)
Quarter: 2021Q4

REPORT INFORMATION
  Report Type: Spontaneous
  Country: AU (occurrence: AU)
  Receive Date: 20211207
  Receipt Date: 20211213
  Transmission Date: 20220303
  Serious: Yes (Other)
  Sender: FDA-Public Use
  Company Number: AU-ELI_LILLY_AND_COMPANY-AU202111011521

PATIENT
  Age: 22 Year
  Sex: Female

DRUGS (2)
  1. BARICITINIB [Suspect]
     Active Substance: BARICITINIB
     Indication: Alopecia totalis
     Dosage: UNK UNK, UNKNOWN
     Route: 065
  2. BARICITINIB [Suspect]
     Active Substance: BARICITINIB
     Dosage: UNK UNK, UNKNOWN
     Route: 065

REACTIONS (2)
  - Deafness neurosensory [Recovered/Resolved]
  - Off label use [Unknown]
